FAERS Safety Report 6445059-5 (Version None)
Quarter: 2009Q4

REPORT INFORMATION
  Report Type: 
  Country: None (occurrence: None)
  Receive Date: 20091118
  Receipt Date: 20091105
  Transmission Date: 20100525
  Serious: Yes (Hospitalization)
  Sender: FDA-Public Use
  Company Number: FR-PFIZER INC-2009293445

PATIENT
  Age: 66 Year
  Sex: Female

DRUGS (11)
  1. XANAX [Suspect]
     Indication: DEPRESSION
     Dosage: 0.25 MG, 1X/DAY
     Route: 048
     Dates: start: 20080101, end: 20090924
  2. TRIFLUCAN [Suspect]
     Indication: ORAL CANDIDIASIS
     Dosage: 100 MG, 1X/DAY
     Route: 048
     Dates: start: 20090921, end: 20090924
  3. BACTRIM DS [Suspect]
     Indication: STAPHYLOCOCCAL INFECTION
     Dosage: 1 DF, 3X/DAY
     Route: 048
     Dates: start: 20090826, end: 20090924
  4. LESCOL [Suspect]
     Indication: ISCHAEMIC CARDIOMYOPATHY
     Dosage: 1 DF, 1X/DAY
     Route: 048
     Dates: start: 20070101, end: 20090924
  5. ESCITALOPRAM [Suspect]
     Indication: DEPRESSION
     Dosage: 1 DF, 1X/DAY
     Route: 048
     Dates: start: 20080101, end: 20090924
  6. AMLOR [Concomitant]
     Dosage: UNK
  7. FUCIDINE CAP [Concomitant]
     Indication: ARTHRODESIS
     Dosage: 2 DF, 3X/DAY
     Route: 048
     Dates: start: 20090701, end: 20090924
  8. PREVISCAN [Concomitant]
     Dosage: UNK
  9. TENORMIN [Concomitant]
     Dosage: UNK
  10. NEXIUM [Concomitant]
     Dosage: UNK
  11. IMOVANE [Concomitant]
     Dosage: UNK

REACTIONS (1)
  - RHABDOMYOLYSIS [None]
